FAERS Safety Report 25235578 (Version 2)
Quarter: 2025Q3

REPORT INFORMATION
  Report Type: Spontaneous
  Country: EU (occurrence: EU)
  Receive Date: 20250424
  Receipt Date: 20250714
  Transmission Date: 20251021
  Serious: Yes (Life-Threatening)
  Sender: MYLAN
  Company Number: None

PATIENT
  Age: 69 Year
  Sex: Male
  Weight: 94 kg

DRUGS (24)
  1. AMLODIPINE [Suspect]
     Active Substance: AMLODIPINE BESYLATE
     Indication: Product used for unknown indication
     Dosage: 10 MILLIGRAM, QD (10 MG/DAY)
     Dates: start: 20250228, end: 20250316
  2. AMLODIPINE [Suspect]
     Active Substance: AMLODIPINE BESYLATE
     Dosage: 10 MILLIGRAM, QD (10 MG/DAY)
     Route: 048
     Dates: start: 20250228, end: 20250316
  3. AMLODIPINE [Suspect]
     Active Substance: AMLODIPINE BESYLATE
     Dosage: 10 MILLIGRAM, QD (10 MG/DAY)
     Route: 048
     Dates: start: 20250228, end: 20250316
  4. AMLODIPINE [Suspect]
     Active Substance: AMLODIPINE BESYLATE
     Dosage: 10 MILLIGRAM, QD (10 MG/DAY)
     Dates: start: 20250228, end: 20250316
  5. MEROPENEM [Suspect]
     Active Substance: MEROPENEM
     Indication: Arthritis bacterial
     Dosage: 1500 MILLIGRAM, QD (1500 MG/DAY)
     Route: 042
     Dates: start: 20250228, end: 20250306
  6. MEROPENEM [Suspect]
     Active Substance: MEROPENEM
     Dosage: 1500 MILLIGRAM, QD (1500 MG/DAY)
     Dates: start: 20250228, end: 20250306
  7. MEROPENEM [Suspect]
     Active Substance: MEROPENEM
     Dosage: 1500 MILLIGRAM, QD (1500 MG/DAY)
     Dates: start: 20250228, end: 20250306
  8. MEROPENEM [Suspect]
     Active Substance: MEROPENEM
     Dosage: 1500 MILLIGRAM, QD (1500 MG/DAY)
     Route: 042
     Dates: start: 20250228, end: 20250306
  9. MEROPENEM [Suspect]
     Active Substance: MEROPENEM
     Dosage: 1500 MILLIGRAM, QD
     Route: 042
     Dates: start: 20250209, end: 20250316
  10. MEROPENEM [Suspect]
     Active Substance: MEROPENEM
     Dosage: 1500 MILLIGRAM, QD
     Dates: start: 20250209, end: 20250316
  11. MEROPENEM [Suspect]
     Active Substance: MEROPENEM
     Dosage: 1500 MILLIGRAM, QD
     Dates: start: 20250209, end: 20250316
  12. MEROPENEM [Suspect]
     Active Substance: MEROPENEM
     Dosage: 1500 MILLIGRAM, QD
     Route: 042
     Dates: start: 20250209, end: 20250316
  13. TYGACIL [Suspect]
     Active Substance: TIGECYCLINE
     Indication: Arthritis bacterial
     Dosage: 200 MILLIGRAM, QD (200 MG/DAY)
     Dates: start: 20250228, end: 20250316
  14. TYGACIL [Suspect]
     Active Substance: TIGECYCLINE
     Dosage: 200 MILLIGRAM, QD (200 MG/DAY)
     Route: 042
     Dates: start: 20250228, end: 20250316
  15. TYGACIL [Suspect]
     Active Substance: TIGECYCLINE
     Dosage: 200 MILLIGRAM, QD (200 MG/DAY)
     Route: 042
     Dates: start: 20250228, end: 20250316
  16. TYGACIL [Suspect]
     Active Substance: TIGECYCLINE
     Dosage: 200 MILLIGRAM, QD (200 MG/DAY)
     Dates: start: 20250228, end: 20250316
  17. CALCIPARINE [Suspect]
     Active Substance: HEPARIN CALCIUM
     Indication: Anticoagulant therapy
     Dosage: 10000 DOSAGE FORM, QD (10000 IU/DAY)
     Dates: start: 20250228, end: 20250316
  18. CALCIPARINE [Suspect]
     Active Substance: HEPARIN CALCIUM
     Dosage: 10000 DOSAGE FORM, QD (10000 IU/DAY)
     Route: 058
     Dates: start: 20250228, end: 20250316
  19. CALCIPARINE [Suspect]
     Active Substance: HEPARIN CALCIUM
     Dosage: 10000 DOSAGE FORM, QD (10000 IU/DAY)
     Route: 058
     Dates: start: 20250228, end: 20250316
  20. CALCIPARINE [Suspect]
     Active Substance: HEPARIN CALCIUM
     Dosage: 10000 DOSAGE FORM, QD (10000 IU/DAY)
     Dates: start: 20250228, end: 20250316
  21. FIDAXOMICIN [Suspect]
     Active Substance: FIDAXOMICIN
     Indication: Product used for unknown indication
     Dosage: 200 MILLIGRAM, QD (200 MG/DAY)
     Dates: start: 20250303, end: 20250315
  22. FIDAXOMICIN [Suspect]
     Active Substance: FIDAXOMICIN
     Dosage: 200 MILLIGRAM, QD (200 MG/DAY)
     Route: 048
     Dates: start: 20250303, end: 20250315
  23. FIDAXOMICIN [Suspect]
     Active Substance: FIDAXOMICIN
     Dosage: 200 MILLIGRAM, QD (200 MG/DAY)
     Route: 048
     Dates: start: 20250303, end: 20250315
  24. FIDAXOMICIN [Suspect]
     Active Substance: FIDAXOMICIN
     Dosage: 200 MILLIGRAM, QD (200 MG/DAY)
     Dates: start: 20250303, end: 20250315

REACTIONS (1)
  - Gastrointestinal haemorrhage [Recovered/Resolved]

NARRATIVE: CASE EVENT DATE: 20250316
